FAERS Safety Report 9127437 (Version 2)
Quarter: 2013Q2

REPORT INFORMATION
  Report Type: Spontaneous
  Country: IT (occurrence: IT)
  Receive Date: 20130228
  Receipt Date: 20130411
  Transmission Date: 20140414
  Serious: Yes (Hospitalization)
  Sender: FDA-Public Use
  Company Number: IT-SANOFI-AVENTIS-2013SA017364

PATIENT
  Age: 73 Year
  Sex: Male

DRUGS (7)
  1. LASIX [Suspect]
     Indication: PRODUCT USED FOR UNKNOWN INDICATION
     Route: 048
     Dates: start: 20120119, end: 20130118
  2. VALSARTAN [Suspect]
     Indication: PRODUCT USED FOR UNKNOWN INDICATION
     Route: 048
     Dates: start: 20120119, end: 20130118
  3. BISOPROLOL HEMIFUMARATE [Concomitant]
     Route: 048
  4. ALLOPURINOL [Concomitant]
     Route: 048
  5. SIVASTIN [Concomitant]
     Route: 048
  6. NITROCOR [Concomitant]
     Dosage: FORM: TRANSDERMAL PATCH
     Route: 062
  7. CARDIOASPIRIN [Concomitant]
     Route: 048

REACTIONS (2)
  - Syncope [Not Recovered/Not Resolved]
  - Renal failure chronic [Not Recovered/Not Resolved]
